FAERS Safety Report 10783938 (Version 2)
Quarter: 2015Q1

REPORT INFORMATION
  Report Type: Spontaneous
  Country: GB (occurrence: GB)
  Receive Date: 20150210
  Receipt Date: 20150212
  Transmission Date: 20150721
  Serious: Yes (Other)
  Sender: FDA-Public Use
  Company Number: PHHY2015GB013924

PATIENT
  Age: 55 Year
  Sex: Female

DRUGS (1)
  1. CIPROFLOXACIN. [Suspect]
     Active Substance: CIPROFLOXACIN
     Indication: ANTIBIOTIC PROPHYLAXIS
     Dosage: 750 MG, 1 H BEFORE THE PROCEDURE
     Route: 048

REACTIONS (5)
  - Pleuritic pain [Unknown]
  - Choking [Unknown]
  - Dyspnoea [Unknown]
  - Chest pain [Unknown]
  - Pneumothorax [Unknown]
